FAERS Safety Report 6671053-5 (Version None)
Quarter: 2010Q2

REPORT INFORMATION
  Report Type: 
  Country: None (occurrence: None)
  Receive Date: 20100407
  Receipt Date: 20100401
  Transmission Date: 20101027
  Serious: Yes (Death)
  Sender: FDA-Public Use
  Company Number: JP-BAYER-200811253BYL

PATIENT
  Age: 76 Year
  Sex: Male
  Weight: 60 kg

DRUGS (14)
  1. NEXAVAR [Suspect]
     Indication: RENAL CELL CARCINOMA
     Dosage: TOTAL DAILY DOSE: 800 MG  UNIT DOSE: 200 MG
     Route: 048
     Dates: start: 20080516, end: 20080528
  2. KREMEZIN [Concomitant]
     Indication: RENAL FAILURE CHRONIC
     Dosage: AS USED: 6 G
     Route: 048
     Dates: end: 20080527
  3. SODIUM BICARBONATE [Concomitant]
     Dosage: SINCE BEFORE ADMINISTRATION
     Route: 048
     Dates: end: 20080527
  4. CANDESARTAN CILEXETIL [Concomitant]
     Indication: HYPERTENSION
     Dosage: SINCE BEFORE ADMINISTRATION
     Route: 048
  5. ALLOPURINOL [Concomitant]
     Dosage: SINCE BEFORE ADMINISTRATION
     Route: 048
  6. MEVALOTIN [Concomitant]
     Indication: HYPERLIPIDAEMIA
     Dosage: SINCE BEFORE ADMINISTRATION
     Route: 048
  7. LOXONIN [Concomitant]
     Indication: CANCER PAIN
     Dosage: UNIT DOSE: 60 MG
     Route: 048
  8. MUCOSTA [Concomitant]
     Dosage: SINCE BEFORE ADMINISTRATION
     Route: 048
  9. PERIACTIN [Concomitant]
     Dosage: SINCE BEFORE ADMINISTRATION
     Route: 048
  10. FERRUM [Concomitant]
     Dosage: SINCE BEFORE ADMINISTRATION
     Route: 048
  11. PROHEPARUM [Concomitant]
     Dosage: SINCE BEFORE ADMINISTRATION
     Route: 048
  12. MOBIC [Concomitant]
     Dosage: SINCE BEFORE ADMINISTRATION
     Route: 048
  13. GLYSENNID [Concomitant]
     Indication: CONSTIPATION
     Dosage: TOTAL DAILY DOSE: 24 MG
     Route: 048
  14. ESPO [Concomitant]
     Dosage: TOTAL DAILY DOSE: 12000 U
     Route: 058

REACTIONS (2)
  - ALTERED STATE OF CONSCIOUSNESS [None]
  - RENAL FAILURE [None]
